FAERS Safety Report 6792876-8 (Version None)
Quarter: 2010Q2

REPORT INFORMATION
  Report Type: 
  Country: None (occurrence: None)
  Receive Date: 20100624
  Receipt Date: 20081021
  Transmission Date: 20101027
  Serious: No
  Sender: FDA-Public Use
  Company Number: US-PFIZER INC-2008084884

PATIENT
  Sex: Female
  Weight: 68.04 kg

DRUGS (6)
  1. SUTENT [Suspect]
     Indication: RENAL CELL CARCINOMA
     Dates: start: 20080929, end: 20081019
  2. CYMBALTA [Interacting]
     Indication: DEPRESSION
     Dates: start: 20080229
  3. CYMBALTA [Interacting]
     Indication: ANXIETY
  4. VITAMINS [Concomitant]
  5. CALTRATE [Concomitant]
  6. GENERAL NUTRIENTS/HERBAL NOS/VITAMINS NOS [Concomitant]

REACTIONS (9)
  - BLOOD PRESSURE INCREASED [None]
  - DRUG INTERACTION [None]
  - EYELID OEDEMA [None]
  - HEADACHE [None]
  - MENORRHAGIA [None]
  - PAIN [None]
  - PYREXIA [None]
  - RASH MACULAR [None]
  - SKIN DISCOLOURATION [None]
